FAERS Safety Report 7683279-2 (Version None)
Quarter: 2011Q3

REPORT INFORMATION
  Report Type: 
  Country: None (occurrence: None)
  Receive Date: 20110815
  Receipt Date: 20110726
  Transmission Date: 20111222
  Serious: Yes (Hospitalization)
  Sender: FDA-Public Use
  Company Number: US-GLAXOSMITHKLINE-A0878759A

PATIENT
  Age: 67 Year
  Sex: Female
  Weight: 81.8 kg

DRUGS (21)
  1. LISINOPRIL [Concomitant]
  2. ELIDEL [Concomitant]
  3. PREVACID [Concomitant]
  4. SKELAXIN [Concomitant]
  5. AMBIEN [Concomitant]
  6. ROXICODONE [Concomitant]
  7. CYMBALTA [Concomitant]
  8. LORAZEPAM [Concomitant]
  9. AVANDAMET [Suspect]
     Indication: DIABETES MELLITUS
     Route: 048
     Dates: start: 20091006, end: 20100126
  10. ARIMIDEX [Concomitant]
  11. COREG CR [Concomitant]
  12. ASPIRIN [Concomitant]
  13. AVANDIA [Suspect]
     Indication: DIABETES MELLITUS
     Dosage: 2MG TWICE PER DAY
     Route: 048
  14. PROAIR HFA [Concomitant]
  15. LIPITOR [Concomitant]
  16. FOSAMAX [Concomitant]
  17. LOPID [Concomitant]
  18. ATIVAN [Concomitant]
  19. MAXZIDE [Concomitant]
  20. ZETIA [Concomitant]
  21. CELEBREX [Concomitant]

REACTIONS (12)
  - CORONARY ARTERY DISEASE [None]
  - AORTIC VALVE REPLACEMENT [None]
  - CARDIOMEGALY [None]
  - PALPITATIONS [None]
  - RENAL FAILURE ACUTE [None]
  - CARDIAC ARREST [None]
  - TACHYCARDIA [None]
  - RESPIRATORY FAILURE [None]
  - BACK PAIN [None]
  - MYOCARDIAL INFARCTION [None]
  - WEIGHT INCREASED [None]
  - CARDIAC FAILURE CONGESTIVE [None]
